FAERS Safety Report 7157865-2 (Version None)
Quarter: 2010Q4

REPORT INFORMATION
  Report Type: 
  Country: None (occurrence: None)
  Receive Date: 20101214
  Receipt Date: 20101206
  Transmission Date: 20110411
  Serious: Yes (Other)
  Sender: FDA-Public Use
  Company Number: GB-JNJFOC-20101203250

PATIENT
  Sex: Female

DRUGS (1)
  1. DARUNAVIR [Suspect]
     Indication: HIV INFECTION
     Route: 048

REACTIONS (3)
  - BREAST ENLARGEMENT [None]
  - HYPERTENSION [None]
  - TACHYCARDIA [None]
